FAERS Safety Report 9945940 (Version 1)
Quarter: 2014Q1

REPORT INFORMATION
  Report Type: Spontaneous
  Country: US (occurrence: US)
  Receive Date: 20140303
  Receipt Date: 20140303
  Transmission Date: 20141002
  Serious: No
  Sender: FDA-Public Use
  Company Number: US-AMGEN-USASP2013077359

PATIENT
  Age: 55 Year
  Sex: Female
  Weight: 53.06 kg

DRUGS (8)
  1. ENBREL [Suspect]
     Indication: PRODUCT USED FOR UNKNOWN INDICATION
     Dosage: 50 MG, QWK
     Route: 058
  2. ALENDRONATE [Concomitant]
     Dosage: 70 MG, UNK
     Route: 048
  3. IRON PLUS                          /00292601/ [Concomitant]
     Dosage: 100 UNK, UNK
     Route: 048
  4. GINKGO BILOBA [Concomitant]
     Dosage: 60 MG, UNK
     Route: 048
  5. VITAMIN D                          /00107901/ [Concomitant]
     Dosage: 2000 UNIT, UNK
     Route: 048
  6. CALCIUM [Concomitant]
     Dosage: 500 UNK, UNK
     Route: 048
  7. FISH OIL [Concomitant]
     Dosage: UNK
     Route: 048
  8. MULTIVITAMINS, PLAIN [Concomitant]
     Dosage: UNK
     Route: 048

REACTIONS (1)
  - Rash [Unknown]
